FAERS Safety Report 6521582-X (Version None)
Quarter: 2009Q4

REPORT INFORMATION
  Report Type: 
  Country: None (occurrence: None)
  Receive Date: 20091230
  Receipt Date: 20091216
  Transmission Date: 20100525
  Serious: Yes (Hospitalization, Other)
  Sender: FDA-Public Use
  Company Number: PHHY2009JP54383

PATIENT
  Age: 71 Year
  Sex: Male

DRUGS (3)
  1. TEGRETOL [Suspect]
     Indication: EPILEPSY
     Dosage: 200 MG IN THE MORNING AND 400 MG IN THE EVENING
     Route: 048
  2. MEVALOTIN [Concomitant]
     Dosage: UNK
  3. HOKUNALIN [Concomitant]
     Dosage: UNK

REACTIONS (3)
  - DRUG LEVEL INCREASED [None]
  - LOSS OF CONSCIOUSNESS [None]
  - RESPIRATORY FAILURE [None]
